FAERS Safety Report 4850482-6 (Version None)
Quarter: 2005Q4

REPORT INFORMATION
  Report Type: 
  Country: None (occurrence: None)
  Receive Date: 20051123
  Receipt Date: 20051007
  Transmission Date: 20060501
  Serious: Yes (Disabling)
  Sender: FDA-Public Use
  Company Number: 218421

PATIENT
  Age: 30 Year
  Sex: Female

DRUGS (1)
  1. RAPTIVA [Suspect]
     Indication: PSORIASIS
     Dosage: 65 G, 1/WEEK, SUBCUTANEOUS
     Route: 058

REACTIONS (1)
  - PSORIASIS [None]
